FAERS Safety Report 11145476 (Version 1)
Quarter: 2015Q2

REPORT INFORMATION
  Report Type: Spontaneous
  Country: None (occurrence: None)
  Receive Date: 20150526
  Receipt Date: 20150526
  Transmission Date: 20150821
  Serious: No
  Sender: FDA-Public Use
  Company Number: None

PATIENT
  Age: 39 Year
  Sex: Male
  Weight: 86 kg

DRUGS (3)
  1. TOBRADEX [Suspect]
     Active Substance: DEXAMETHASONE\TOBRAMYCIN
     Indication: EYE INFECTION
     Dosage: INTO THE EYE; 1 DROP EACH EYE
  2. FISH OIL OMEGA 3 CONCENTRATE [Concomitant]
     Active Substance: FISH OIL
  3. PATANOL [Suspect]
     Active Substance: OLOPATADINE HYDROCHLORIDE
     Indication: EYE ALLERGY
     Dosage: INTO THE EYE; 1 DROP EACH EYE

REACTIONS (2)
  - Hearing impaired [None]
  - Tinnitus [None]

NARRATIVE: CASE EVENT DATE: 20150508
